FAERS Safety Report 10640383 (Version 1)
Quarter: 2014Q4

REPORT INFORMATION
  Report Type: Spontaneous
  Country: GB (occurrence: None)
  Receive Date: 20141205
  Receipt Date: 20141205
  Transmission Date: 20150529
  Serious: Yes (Other)
  Sender: FDA-Public Use
  Company Number: GB-017872

PATIENT
  Age: 33 Year
  Sex: Female

DRUGS (1)
  1. PROPESS [Suspect]
     Active Substance: DINOPROSTONE
     Indication: LABOUR INDUCTION
     Dosage: VAGINAL
     Route: 067

REACTIONS (3)
  - Uterine rupture [None]
  - Caesarean section [None]
  - Bladder injury [None]
